FAERS Safety Report 10065930 (Version 2)
Quarter: 2014Q2

REPORT INFORMATION
  Report Type: Spontaneous
  Country: US (occurrence: US)
  Receive Date: 20140408
  Receipt Date: 20140606
  Transmission Date: 20141212
  Serious: Yes (Death, Hospitalization)
  Sender: FDA-Public Use
  Company Number: US-INCYTE CORPORATION-2014IN000925

PATIENT
  Age: 54 Year
  Sex: Male

DRUGS (3)
  1. JAKAFI [Suspect]
     Indication: MYELOFIBROSIS
     Dosage: 10 MG, QD
     Route: 048
     Dates: start: 2011, end: 201306
  2. JAKAFI [Suspect]
     Dosage: 10 MG, QD
     Route: 048
     Dates: start: 201312
  3. LENALIDOMIDE [Concomitant]

REACTIONS (6)
  - Disease progression [Fatal]
  - Atrial fibrillation [Not Recovered/Not Resolved]
  - Abdominal pain [Not Recovered/Not Resolved]
  - Peritonitis bacterial [Not Recovered/Not Resolved]
  - Hepatic cirrhosis [Not Recovered/Not Resolved]
  - Hepatic encephalopathy [Not Recovered/Not Resolved]
